APPROVED DRUG PRODUCT: BUSPIRONE HYDROCHLORIDE
Active Ingredient: BUSPIRONE HYDROCHLORIDE
Strength: 5MG
Dosage Form/Route: TABLET;ORAL
Application: A078888 | Product #001 | TE Code: AB
Applicant: ZYDUS PHARMACEUTICALS USA INC
Approved: Feb 7, 2014 | RLD: No | RS: No | Type: RX